FAERS Safety Report 5331493-3 (Version None)
Quarter: 2007Q2

REPORT INFORMATION
  Report Type: 
  Country: None (occurrence: None)
  Receive Date: 20070522
  Receipt Date: 20070510
  Transmission Date: 20071010
  Serious: Yes (Hospitalization)
  Sender: FDA-Public Use
  Company Number: TR-ELI_LILLY_AND_COMPANY-TR200704004205

PATIENT
  Age: 15 Year
  Sex: Male
  Weight: 93 kg

DRUGS (2)
  1. HUMULIN R [Suspect]
     Indication: DIABETES MELLITUS INSULIN-DEPENDENT
     Dosage: ABOVE 30 IU, ADJUSTED
     Route: 058
     Dates: start: 20070410
  2. LANTUS [Concomitant]
     Indication: DIABETES MELLITUS INSULIN-DEPENDENT
     Dosage: UNK, UNK
     Dates: start: 20070410

REACTIONS (4)
  - DIARRHOEA [None]
  - NAUSEA [None]
  - SINUSITIS [None]
  - VOMITING [None]
